FAERS Safety Report 12451346 (Version 9)
Quarter: 2021Q3

REPORT INFORMATION
  Report Type: Report from Study
  Country: JP (occurrence: JP)
  Receive Date: 20160609
  Receipt Date: 20210826
  Transmission Date: 20211014
  Serious: Yes (Death, Hospitalization, Other)
  Sender: FDA-Public Use
  Company Number: JP-INCYTE CORPORATION-2016IN003312

PATIENT

DRUGS (32)
  1. PLATELETS [Concomitant]
     Active Substance: HUMAN PLATELET, ALLOGENIC
     Dosage: 200 ML
     Route: 065
     Dates: start: 20170701, end: 20170701
  2. RED BLOOD CELLS [Concomitant]
     Active Substance: HUMAN RED BLOOD CELL
     Dosage: 280 ML
     Route: 065
     Dates: start: 20160601, end: 20160601
  3. RED BLOOD CELLS [Concomitant]
     Active Substance: HUMAN RED BLOOD CELL
     Dosage: 280 ML
     Route: 065
     Dates: start: 20161218, end: 20161218
  4. RED BLOOD CELLS [Concomitant]
     Active Substance: HUMAN RED BLOOD CELL
     Dosage: 280 ML
     Route: 065
     Dates: start: 20170309, end: 20170309
  5. RED BLOOD CELLS [Concomitant]
     Active Substance: HUMAN RED BLOOD CELL
     Dosage: 280 ML
     Route: 065
     Dates: start: 20170602, end: 20170602
  6. RED BLOOD CELLS [Concomitant]
     Active Substance: HUMAN RED BLOOD CELL
     Dosage: 280 ML
     Route: 065
     Dates: start: 20170708, end: 20170708
  7. VFEND [Concomitant]
     Active Substance: VORICONAZOLE
     Indication: PRODUCT USED FOR UNKNOWN INDICATION
     Dosage: 200 MG
     Route: 065
     Dates: start: 20160525, end: 20160530
  8. RED BLOOD CELLS [Concomitant]
     Active Substance: HUMAN RED BLOOD CELL
     Dosage: 280 ML
     Route: 065
     Dates: start: 20160628, end: 20160628
  9. RED BLOOD CELLS [Concomitant]
     Active Substance: HUMAN RED BLOOD CELL
     Dosage: 280 ML
     Route: 065
     Dates: start: 20160614, end: 20160614
  10. RED BLOOD CELLS [Concomitant]
     Active Substance: HUMAN RED BLOOD CELL
     Dosage: 280 ML
     Route: 065
     Dates: start: 20170406, end: 20170406
  11. PLATELETS [Concomitant]
     Active Substance: HUMAN PLATELET, ALLOGENIC
     Dosage: 200 ML
     Route: 065
     Dates: start: 20170707, end: 20170707
  12. JAKAVI [Suspect]
     Active Substance: RUXOLITINIB
     Dosage: 5 MG, BID
     Route: 048
     Dates: start: 20160809, end: 20161031
  13. JAKAVI [Suspect]
     Active Substance: RUXOLITINIB
     Dosage: 7.5 MG, BID
     Route: 048
     Dates: start: 20161101, end: 20170104
  14. JAKAVI [Suspect]
     Active Substance: RUXOLITINIB
     Dosage: 5 MG, QD
     Route: 048
     Dates: start: 20170324, end: 20170508
  15. JAKAVI [Suspect]
     Active Substance: RUXOLITINIB
     Dosage: 5 MG, QD
     Route: 048
     Dates: start: 20170714, end: 20170728
  16. RED BLOOD CELLS [Concomitant]
     Active Substance: HUMAN RED BLOOD CELL
     Dosage: 280 ML
     Route: 065
     Dates: start: 20170323, end: 20170323
  17. RED BLOOD CELLS [Concomitant]
     Active Substance: HUMAN RED BLOOD CELL
     Dosage: 280 ML
     Route: 065
     Dates: start: 20170525, end: 20170525
  18. RED BLOOD CELLS [Concomitant]
     Active Substance: HUMAN RED BLOOD CELL
     Dosage: 280 ML
     Route: 065
     Dates: start: 20170622, end: 20170622
  19. PLATELETS [Concomitant]
     Active Substance: HUMAN PLATELET, ALLOGENIC
     Indication: MYELOFIBROSIS
     Dosage: 200 ML
     Route: 065
     Dates: start: 20170628, end: 20170628
  20. JAKAVI [Suspect]
     Active Substance: RUXOLITINIB
     Dosage: 5 MG, BID
     Route: 048
     Dates: start: 20170105, end: 20170323
  21. RED BLOOD CELLS [Concomitant]
     Active Substance: HUMAN RED BLOOD CELL
     Indication: MYELOFIBROSIS
     Dosage: 280 ML
     Route: 065
     Dates: start: 20160530, end: 20160530
  22. RED BLOOD CELLS [Concomitant]
     Active Substance: HUMAN RED BLOOD CELL
     Dosage: 280 ML
     Route: 065
     Dates: start: 20160712, end: 20160712
  23. RED BLOOD CELLS [Concomitant]
     Active Substance: HUMAN RED BLOOD CELL
     Dosage: 280 ML
     Route: 065
     Dates: start: 20170616, end: 20170616
  24. RED BLOOD CELLS [Concomitant]
     Active Substance: HUMAN RED BLOOD CELL
     Dosage: 280 ML
     Route: 065
     Dates: start: 20170629, end: 20170629
  25. JAKAVI [Suspect]
     Active Substance: RUXOLITINIB
     Indication: MYELOFIBROSIS
     Dosage: 15 MG, BID
     Route: 048
     Dates: start: 20160518, end: 20160524
  26. RED BLOOD CELLS [Concomitant]
     Active Substance: HUMAN RED BLOOD CELL
     Dosage: 280 ML
     Route: 065
     Dates: start: 20170420, end: 20170420
  27. RED BLOOD CELLS [Concomitant]
     Active Substance: HUMAN RED BLOOD CELL
     Dosage: 280 ML
     Route: 065
     Dates: start: 20170509, end: 20170509
  28. RED BLOOD CELLS [Concomitant]
     Active Substance: HUMAN RED BLOOD CELL
     Dosage: 280 ML
     Route: 065
     Dates: start: 20170610, end: 20170610
  29. JAKAVI [Suspect]
     Active Substance: RUXOLITINIB
     Dosage: 5 MG, QD
     Route: 048
     Dates: start: 20160705, end: 20160808
  30. JAKAVI [Suspect]
     Active Substance: RUXOLITINIB
     Dosage: 5 MG, BID
     Route: 048
     Dates: start: 20170509, end: 20170619
  31. VFEND [Concomitant]
     Active Substance: VORICONAZOLE
     Dosage: 200 MG
     Route: 065
     Dates: start: 20170607, end: 20170620
  32. RED BLOOD CELLS [Concomitant]
     Active Substance: HUMAN RED BLOOD CELL
     Dosage: 280 ML
     Route: 065
     Dates: start: 20161229, end: 20161229

REACTIONS (7)
  - Pneumonia [Not Recovered/Not Resolved]
  - Epistaxis [Recovering/Resolving]
  - Myelofibrosis [Fatal]
  - Anaemia [Not Recovered/Not Resolved]
  - Condition aggravated [Fatal]
  - Hepatic function abnormal [Recovered/Resolved]
  - Thrombocytopenia [Recovering/Resolving]

NARRATIVE: CASE EVENT DATE: 20160524
